FAERS Safety Report 25828479 (Version 1)
Quarter: 2025Q3

REPORT INFORMATION
  Report Type: Spontaneous
  Country: CN (occurrence: CN)
  Receive Date: 20250922
  Receipt Date: 20250922
  Transmission Date: 20251021
  Serious: Yes (Other)
  Sender: BAXTER
  Company Number: None

PATIENT
  Age: 54 Year
  Sex: Male

DRUGS (7)
  1. CYCLOPHOSPHAMIDE [Suspect]
     Active Substance: CYCLOPHOSPHAMIDE
     Indication: Natural killer-cell leukaemia
     Route: 065
     Dates: start: 20240413
  2. CYCLOPHOSPHAMIDE [Suspect]
     Active Substance: CYCLOPHOSPHAMIDE
     Dosage: 1.3 G, 1X A WEEK (QW) (TPC REGIMEN)
     Route: 065
     Dates: start: 20240520
  3. VINDESINE [Suspect]
     Active Substance: VINDESINE
     Indication: Natural killer-cell leukaemia
     Dosage: ON DAY 1 (CHOP REGIMEN)
     Route: 065
     Dates: start: 20240413
  4. PREDNISONE [Suspect]
     Active Substance: PREDNISONE
     Indication: Natural killer-cell leukaemia
     Dosage: FROM DAYS 1-5, (CHOP REGIMEN)
     Route: 065
     Dates: start: 20240413
  5. DOXORUBICIN [Suspect]
     Active Substance: DOXORUBICIN
     Indication: Natural killer-cell leukaemia
     Route: 065
     Dates: start: 20240413
  6. THALIDOMIDE [Suspect]
     Active Substance: THALIDOMIDE
     Indication: Natural killer-cell leukaemia
     Route: 065
     Dates: start: 20240520
  7. METHYLPREDNISOLONE [Suspect]
     Active Substance: METHYLPREDNISOLONE
     Indication: Natural killer-cell leukaemia
     Dosage: 8 MG, QD (TPC REGIMEN)
     Route: 065
     Dates: start: 20240520

REACTIONS (5)
  - Natural killer-cell leukaemia [Unknown]
  - Disease progression [Unknown]
  - Myelosuppression [Recovered/Resolved]
  - Infection [Recovered/Resolved]
  - Choluria [Unknown]

NARRATIVE: CASE EVENT DATE: 20240101
